FAERS Safety Report 19562733 (Version 1)
Quarter: 2021Q3

REPORT INFORMATION
  Report Type: Spontaneous
  Country: US (occurrence: US)
  Receive Date: 20210716
  Receipt Date: 20210716
  Transmission Date: 20211014
  Serious: No
  Sender: FDA-Public Use
  Company Number: US-ORGANON-O2107USA000784

PATIENT
  Age: 66 Year
  Sex: Male
  Weight: 106.58 kg

DRUGS (2)
  1. ASMANEX [Suspect]
     Active Substance: MOMETASONE FUROATE
  2. ASMANEX [Suspect]
     Active Substance: MOMETASONE FUROATE
     Indication: ASTHMA
     Dosage: UNK
     Dates: start: 20210624

REACTIONS (4)
  - Cough [Recovered/Resolved]
  - Poor quality device used [Unknown]
  - Device malfunction [Unknown]
  - Sputum increased [Recovered/Resolved]

NARRATIVE: CASE EVENT DATE: 20210624
